FAERS Safety Report 16128924 (Version 1)
Quarter: 2019Q1

REPORT INFORMATION
  Report Type: Report from Study
  Country: None (occurrence: NZ)
  Receive Date: 20190328
  Receipt Date: 20190328
  Transmission Date: 20190418
  Serious: Yes (Other)
  Sender: FDA-Public Use
  Company Number: NZ-ABBVIE-19K-118-2721078-00

PATIENT
  Age: 39 Year
  Sex: Female

DRUGS (1)
  1. HUMIRA [Suspect]
     Active Substance: ADALIMUMAB
     Indication: HIDRADENITIS
     Route: 058
     Dates: start: 20181220

REACTIONS (16)
  - Emotional disorder [Unknown]
  - Diarrhoea [Unknown]
  - Eczema [Unknown]
  - Arthralgia [Unknown]
  - Disorganised speech [Not Recovered/Not Resolved]
  - Memory impairment [Not Recovered/Not Resolved]
  - Skin lesion [Unknown]
  - Anxiety [Not Recovered/Not Resolved]
  - Cough [Unknown]
  - Stress [Unknown]
  - Irritability [Unknown]
  - Alopecia [Not Recovered/Not Resolved]
  - Suicidal ideation [Unknown]
  - Sputum retention [Unknown]
  - Anger [Unknown]
  - Seborrhoea [Unknown]

NARRATIVE: CASE EVENT DATE: 201903
